FAERS Safety Report 6132425-0 (Version None)
Quarter: 2009Q1

REPORT INFORMATION
  Report Type: 
  Country: None (occurrence: None)
  Receive Date: 20090325
  Receipt Date: 20090323
  Transmission Date: 20090719
  Serious: Yes (Hospitalization)
  Sender: FDA-Public Use
  Company Number: US-B.I. PHARMACEUTICALS,INC./RIDGEFIELD-2005-BP-20266BP

PATIENT
  Sex: Female

DRUGS (4)
  1. CATAPRES [Suspect]
     Indication: HYPERTENSION
     Dosage: .2MG
     Route: 048
     Dates: start: 20020101
  2. CATAPRES [Suspect]
     Route: 048
     Dates: start: 20050101
  3. COZAAR [Suspect]
     Indication: HYPERTENSION
  4. CATAPRES-TTS-1 [Concomitant]

REACTIONS (8)
  - BLADDER PROLAPSE [None]
  - BLOOD PRESSURE DECREASED [None]
  - BLOOD PRESSURE INCREASED [None]
  - HYPERHIDROSIS [None]
  - INSOMNIA [None]
  - MENISCUS LESION [None]
  - NOCTURIA [None]
  - UTERINE PROLAPSE [None]
